FAERS Safety Report 21879959 (Version 1)
Quarter: 2023Q1

REPORT INFORMATION
  Report Type: Spontaneous
  Country: US (occurrence: US)
  Receive Date: 20230118
  Receipt Date: 20230118
  Transmission Date: 20230418
  Serious: No
  Sender: FDA-Public Use
  Company Number: US-009507513-2212USA007849

PATIENT

DRUGS (1)
  1. REBETRON [Suspect]
     Active Substance: INTERFERON ALFA-2B\RIBAVIRIN
     Indication: Respiratory tract infection viral
     Dosage: UNK

REACTIONS (1)
  - Product use in unapproved indication [Unknown]
